FAERS Safety Report 9745995 (Version 3)
Quarter: 2014Q2

REPORT INFORMATION
  Report Type: Spontaneous
  Country: GB (occurrence: GB)
  Receive Date: 20131211
  Receipt Date: 20140515
  Transmission Date: 20141212
  Serious: Yes (Hospitalization)
  Sender: FDA-Public Use
  Company Number: PHFR2013GB007009

PATIENT
  Age: 27 Year
  Sex: Male

DRUGS (6)
  1. CLOZARIL [Suspect]
     Indication: BIPOLAR DISORDER
     Dosage: UNK
  2. CLOZARIL [Suspect]
     Indication: OFF LABEL USE
     Dosage: UNK
     Dates: start: 20130912
  3. DEPAKOTE [Concomitant]
     Indication: BIPOLAR DISORDER
     Dosage: UNK
  4. LITHIUM CARBONATE [Concomitant]
     Dosage: 750 MG, QD (250 MG BD AND 500 MG NOCTE
  5. VENLAFAXINE [Concomitant]
     Dosage: 75 MG, BID
  6. PROPRANOLOL [Concomitant]
     Dosage: 60 MG, (40 MG BD AND 20 MG NOCTE)

REACTIONS (11)
  - Aggression [Unknown]
  - Anxiety [Unknown]
  - Affect lability [Unknown]
  - Irritability [Unknown]
  - Frustration [Unknown]
  - Poor quality sleep [Unknown]
  - Psychomotor hyperactivity [Unknown]
  - Thinking abnormal [Unknown]
  - Disturbance in attention [Unknown]
  - Mania [Unknown]
  - Blood count abnormal [Unknown]
